FAERS Safety Report 7584331-2 (Version None)
Quarter: 2011Q2

REPORT INFORMATION
  Report Type: 
  Country: None (occurrence: None)
  Receive Date: 20110630
  Receipt Date: 20090319
  Transmission Date: 20111010
  Serious: Yes (Death, Other)
  Sender: FDA-Public Use
  Company Number: US-BAYER-200915962NA

PATIENT
  Age: 74 Year
  Sex: Male
  Weight: 124.5 kg

DRUGS (9)
  1. LEVOPHED [Concomitant]
     Dosage: UNK
     Route: 042
     Dates: start: 20051101
  2. HEPARIN [Concomitant]
     Dosage: UNK
     Route: 042
     Dates: start: 20051101
  3. TRASYLOL [Suspect]
     Indication: CORONARY ARTERY BYPASS
     Dosage: 200 CC LOADING DOSE THEN 50 CC/HOUR INFUSION
     Route: 042
     Dates: start: 20051101, end: 20051101
  4. ALBUTEROL SULFATE AUTOHALER [Concomitant]
     Dosage: 2 PUFF EVERY 4 HRS. AS NEEDED
     Route: 055
  5. CEFAZOLIN [Concomitant]
     Dosage: UNK
     Route: 042
     Dates: start: 20051101
  6. TRASYLOL [Suspect]
     Indication: MITRAL VALVE REPAIR
  7. DOBUTAMINE HCL [Concomitant]
     Indication: LOW CARDIAC OUTPUT SYNDROME
     Dosage: UNK
     Route: 042
     Dates: start: 20051101
  8. MILRINONE [Concomitant]
     Dosage: 2 G, UNK
     Route: 042
     Dates: start: 20051101
  9. FENTANYL [Concomitant]
     Dosage: UNK
     Route: 042
     Dates: start: 20051101

REACTIONS (12)
  - STRESS [None]
  - INJURY [None]
  - EMOTIONAL DISTRESS [None]
  - ADVERSE EVENT [None]
  - FEAR [None]
  - MULTI-ORGAN FAILURE [None]
  - ANXIETY [None]
  - ANHEDONIA [None]
  - DEATH [None]
  - RENAL FAILURE [None]
  - PAIN [None]
  - UNEVALUABLE EVENT [None]
